FAERS Safety Report 5396690-X (Version None)
Quarter: 2007Q3

REPORT INFORMATION
  Report Type: 
  Country: None (occurrence: None)
  Receive Date: 20070725
  Receipt Date: 20061120
  Transmission Date: 20080115
  Serious: No
  Sender: FDA-Public Use
  Company Number: US-AMGEN-KDL200851

PATIENT
  Sex: Male

DRUGS (10)
  1. EPOGEN [Suspect]
     Indication: RENAL FAILURE CHRONIC
     Dates: start: 20030101
  2. COREG [Concomitant]
  3. VICODIN [Concomitant]
  4. SENSIPAR [Concomitant]
  5. GLUCAGON [Concomitant]
  6. OMEPRAZOLE [Concomitant]
  7. RENAGEL [Concomitant]
  8. NORTRIPTYLINE HCL [Concomitant]
  9. LEVITRA [Concomitant]
  10. LEVOCARNITINE [Concomitant]

REACTIONS (3)
  - INFECTION [None]
  - SERUM FERRITIN INCREASED [None]
  - THERAPEUTIC RESPONSE DECREASED [None]
